FAERS Safety Report 7793034-0 (Version None)
Quarter: 2011Q4

REPORT INFORMATION
  Report Type: 
  Country: None (occurrence: None)
  Receive Date: 20111003
  Receipt Date: 20110919
  Transmission Date: 20120403
  Serious: Yes (Hospitalization)
  Sender: FDA-Public Use
  Company Number: AU-ACTELION-A-CH2011-54216

PATIENT
  Sex: Female
  Weight: 55.8 kg

DRUGS (8)
  1. SILDENAFIL CITRATE [Suspect]
  2. MULTI-VITAMIN [Concomitant]
  3. NIFEDIPINE [Concomitant]
  4. SPIRONOLACTONE [Concomitant]
  5. TRACLEER [Suspect]
     Dosage: 62.5 MG, BID
     Route: 048
     Dates: start: 20090320, end: 20090418
  6. FISH OIL [Concomitant]
  7. TRACLEER [Suspect]
     Indication: PULMONARY ARTERIAL HYPERTENSION
     Dosage: 125 MG, BID
     Route: 048
     Dates: start: 20090419
  8. NEXIUM [Concomitant]

REACTIONS (4)
  - SUICIDE ATTEMPT [None]
  - CARBON MONOXIDE POISONING [None]
  - ALANINE AMINOTRANSFERASE INCREASED [None]
  - MULTIPLE DRUG OVERDOSE INTENTIONAL [None]
